FAERS Safety Report 16690404 (Version 2)
Quarter: 2019Q3

REPORT INFORMATION
  Report Type: Report from Study
  Country: CN (occurrence: CN)
  Receive Date: 20190810
  Receipt Date: 20190815
  Transmission Date: 20191004
  Serious: Yes (Death)
  Sender: FDA-Public Use
  Company Number: CN-ROCHE-1892677

PATIENT
  Age: 65 Year
  Sex: Female
  Weight: 62 kg

DRUGS (2)
  1. ATEZOLIZUMAB. [Suspect]
     Active Substance: ATEZOLIZUMAB
     Indication: NON-SMALL CELL LUNG CANCER
     Dosage: THE DATE OF THE MOST RECENT DOSE OF ATEZOLIZUMAB 1200 MG PRIOR TO SAE ONSET WAS ADMINISTERED ON 18/J
     Route: 042
     Dates: start: 20170118
  2. ZOLEDRONIC ACID [Concomitant]
     Active Substance: ZOLEDRONIC ACID
     Indication: BONE PAIN
     Dosage: NEEDLE
     Route: 065
     Dates: start: 20170117, end: 20170117

REACTIONS (1)
  - Death [Fatal]

NARRATIVE: CASE EVENT DATE: 20170207
